FAERS Safety Report 7073959-4 (Version None)
Quarter: 2010Q4

REPORT INFORMATION
  Report Type: 
  Country: None (occurrence: None)
  Receive Date: 20101029
  Receipt Date: 20101021
  Transmission Date: 20110411
  Serious: Yes (Hospitalization, Other)
  Sender: FDA-Public Use
  Company Number: US-JNJFOC-20101006613

PATIENT
  Sex: Male

DRUGS (5)
  1. FENTANYL [Suspect]
     Indication: DIABETIC NEUROPATHY
     Route: 065
  2. FENTANYL [Suspect]
     Route: 065
  3. FENTANYL [Suspect]
     Route: 065
  4. FENTANYL [Suspect]
     Route: 065
  5. UNKNOWN MEDICATION [Suspect]
     Indication: PAIN
     Route: 048

REACTIONS (6)
  - JOINT DISLOCATION [None]
  - NASOPHARYNGITIS [None]
  - OSTEOARTHRITIS [None]
  - RHEUMATOID ARTHRITIS [None]
  - WEIGHT DECREASED [None]
  - WRONG TECHNIQUE IN DRUG USAGE PROCESS [None]
